FAERS Safety Report 9218162 (Version 1)
Quarter: 2013Q2

REPORT INFORMATION
  Report Type: Spontaneous
  Country: US (occurrence: US)
  Receive Date: 20130408
  Receipt Date: 20130408
  Transmission Date: 20140414
  Serious: Yes (Other)
  Sender: FDA-Public Use
  Company Number: US-PFIZER INC-2013109926

PATIENT
  Age: 68 Year
  Sex: Male
  Weight: 92.52 kg

DRUGS (2)
  1. LIPITOR [Suspect]
     Indication: HYPERCHOLESTEROLAEMIA
     Dosage: 10 MG, DAILY
  2. LIPITOR [Suspect]
     Dosage: 20 MG, DAILY

REACTIONS (3)
  - Osteomyelitis [Recovered/Resolved]
  - Polyneuropathy [Unknown]
  - Sensory loss [Unknown]
